FAERS Safety Report 6700156-1 (Version None)
Quarter: 2010Q2

REPORT INFORMATION
  Report Type: 
  Country: None (occurrence: None)
  Receive Date: 20100428
  Receipt Date: 20100408
  Transmission Date: 20101027
  Serious: No
  Sender: FDA-Public Use
  Company Number: US-B.I. PHARMACEUTICALS,INC./RIDGEFIELD-2010-BP-04099BP

PATIENT
  Sex: Male

DRUGS (2)
  1. ZANTAC 75 [Suspect]
     Indication: GASTROOESOPHAGEAL REFLUX DISEASE
     Dosage: 150 MG
     Route: 048
     Dates: start: 20100330, end: 20100407
  2. ZANTAC 75 [Suspect]
     Indication: OESOPHAGEAL ULCER

REACTIONS (1)
  - GASTROOESOPHAGEAL REFLUX DISEASE [None]
